FAERS Safety Report 5319660-6 (Version None)
Quarter: 2007Q2

REPORT INFORMATION
  Report Type: 
  Country: None (occurrence: None)
  Receive Date: 20070508
  Receipt Date: 20070427
  Transmission Date: 20071010
  Serious: Yes (Hospitalization)
  Sender: FDA-Public Use
  Company Number: CH-MERCK-0704CHE00020

PATIENT
  Age: 48 Year
  Sex: Male

DRUGS (3)
  1. VYTORIN [Suspect]
     Route: 048
     Dates: start: 20060501, end: 20060901
  2. ATORVASTATIN CALCIUM [Suspect]
     Route: 048
     Dates: start: 20051001, end: 20060501
  3. EZETIMIBE [Suspect]
     Route: 048
     Dates: start: 20070129, end: 20070223

REACTIONS (1)
  - MYOSITIS [None]
